FAERS Safety Report 10335000 (Version 4)
Quarter: 2015Q2

REPORT INFORMATION
  Report Type: Spontaneous
  Country: US (occurrence: US)
  Receive Date: 20140723
  Receipt Date: 20150421
  Transmission Date: 20150821
  Serious: Yes (Hospitalization, Other)
  Sender: FDA-Public Use
  Company Number: US-BAYER-2014-107068

PATIENT
  Age: 38 Year
  Sex: Female
  Weight: 61.22 kg

DRUGS (1)
  1. MIRENA [Suspect]
     Active Substance: LEVONORGESTREL
     Indication: CONTRACEPTION
     Dosage: 20 MCG/24HR, CONT
     Route: 015
     Dates: start: 20080211, end: 20090924

REACTIONS (12)
  - Anxiety [None]
  - Embedded device [None]
  - Device dislocation [None]
  - Nausea [None]
  - Menorrhagia [None]
  - Pelvic pain [None]
  - Injury [None]
  - Abdominal pain [None]
  - Genital haemorrhage [None]
  - Thrombosis [None]
  - Vaginal haemorrhage [None]
  - Depression [None]

NARRATIVE: CASE EVENT DATE: 2008
